FAERS Safety Report 16812927 (Version 1)
Quarter: 2019Q3

REPORT INFORMATION
  Report Type: Other
  Country: US (occurrence: US)
  Receive Date: 20190916
  Receipt Date: 20190916
  Transmission Date: 20191005
  Serious: No
  Sender: FDA-Public Use
  Company Number: US-LEADIANT BIOSCIENCES INC-2018STPI000508

PATIENT
  Sex: Male

DRUGS (2)
  1. MATULANE [Suspect]
     Active Substance: PROCARBAZINE HYDROCHLORIDE
     Dosage: 100 MG, QD ON DAY 14, EVERY 8-WEEK CYCLE FOR 1 YEAR
     Route: 048
     Dates: start: 20180516
  2. MATULANE [Suspect]
     Active Substance: PROCARBAZINE HYDROCHLORIDE
     Indication: BRAIN NEOPLASM MALIGNANT
     Dosage: 200 MG, QD DAYS 1-13 EVERY 8-WEEK CYCLE FOR 1 YEAR
     Route: 048
     Dates: start: 20180516

REACTIONS (5)
  - Dyspnoea [Recovered/Resolved]
  - Fatigue [Recovered/Resolved]
  - Nausea [Recovered/Resolved]
  - Disorientation [Recovered/Resolved]
  - Heart rate increased [Recovered/Resolved]
